FAERS Safety Report 19132938 (Version 3)
Quarter: 2021Q2

REPORT INFORMATION
  Report Type: Other
  Country: US (occurrence: US)
  Receive Date: 20210413
  Receipt Date: 20210430
  Transmission Date: 20210717
  Serious: Yes (Other)
  Sender: FDA-Public Use
  Company Number: US-ROCHE-2796179

PATIENT
  Sex: Female

DRUGS (32)
  1. ACTEMRA [Suspect]
     Active Substance: TOCILIZUMAB
     Indication: PRODUCT USED FOR UNKNOWN INDICATION
     Dosage: 162 MG/0.9 ML
     Route: 058
  2. XOLAIR [Suspect]
     Active Substance: OMALIZUMAB
     Indication: PRODUCT USED FOR UNKNOWN INDICATION
     Route: 065
  3. FUROSEMIDE. [Concomitant]
     Active Substance: FUROSEMIDE
  4. NAPROXEN. [Concomitant]
     Active Substance: NAPROXEN
     Route: 048
  5. FOLIC ACID. [Concomitant]
     Active Substance: FOLIC ACID
     Route: 048
  6. GARLIC. [Concomitant]
     Active Substance: GARLIC
  7. FISH OIL [Concomitant]
     Active Substance: FISH OIL
  8. VITAMIN D3 [Concomitant]
     Active Substance: CHOLECALCIFEROL
     Dosage: 50 MCG (2000 UNIT)
  9. TUBERCULIN NOS [Concomitant]
     Active Substance: TUBERCULIN PURIFIED PROTEIN DERIVATIVE
  10. CYCLOBENZAPRINE. [Concomitant]
     Active Substance: CYCLOBENZAPRINE
     Indication: MYALGIA
     Route: 048
  11. ALPRAZOLAM. [Concomitant]
     Active Substance: ALPRAZOLAM
     Route: 048
  12. ALLEGRA ALLERGY [Concomitant]
     Active Substance: FEXOFENADINE HYDROCHLORIDE
     Route: 048
  13. COENZYME Q10 [Concomitant]
     Active Substance: DIETARY SUPPLEMENT\UBIDECARENONE
  14. POTASSIUM CHLORIDE ER [Concomitant]
     Active Substance: POTASSIUM CHLORIDE
     Dosage: WITH FOOD
     Route: 048
  15. ACTEMRA [Suspect]
     Active Substance: TOCILIZUMAB
  16. CINNAMON. [Concomitant]
     Active Substance: CINNAMON
  17. DULOXETINE. [Concomitant]
     Active Substance: DULOXETINE
     Route: 048
  18. HYDROXYZINE HCL [Concomitant]
     Active Substance: HYDROXYZINE HYDROCHLORIDE
     Dosage: AS NEEDED
     Route: 048
  19. PANTOPRAZOLE [Concomitant]
     Active Substance: PANTOPRAZOLE
     Route: 048
  20. METHOTREXATE SODIUM. [Concomitant]
     Active Substance: METHOTREXATE SODIUM
     Dosage: 25 MG/ML SOULTION
  21. APPLE CIDER VINEGAR [Concomitant]
     Active Substance: APPLE CIDER VINEGAR
  22. ASPIRIN. [Concomitant]
     Active Substance: ASPIRIN
     Route: 048
  23. CARTIA XT [Concomitant]
     Active Substance: DILTIAZEM HYDROCHLORIDE
     Route: 048
  24. VITAMIN C [Concomitant]
     Active Substance: ASCORBIC ACID
  25. ELIQUIS [Concomitant]
     Active Substance: APIXABAN
     Route: 048
  26. NITROGLYCERIN. [Concomitant]
     Active Substance: NITROGLYCERIN
     Dosage: EVERY 5 MINUTES AS NEEDED FOR CHEST PAIN. DO NOT EXCEED 3 DOSES IN 15 MINUTES
     Route: 060
  27. PROBIOTICA [Concomitant]
     Active Substance: PROBIOTICS NOS
  28. ROPINIROLE. [Concomitant]
     Active Substance: ROPINIROLE
     Route: 048
  29. TURMERIC [Concomitant]
     Active Substance: HERBALS\TURMERIC
  30. ALENDRONATE [Concomitant]
     Active Substance: ALENDRONATE SODIUM
     Dosage: IN THE MORNING, AT LEAST 30 MIN BEFORE FIRST FOOD, BEVERAGE OR MEDICATION OF DAY
     Route: 048
  31. ESBRIET [Suspect]
     Active Substance: PIRFENIDONE
     Indication: PULMONARY FIBROSIS
     Route: 048
  32. CALCIUM [Concomitant]
     Active Substance: CALCIUM
     Dosage: 5000 + D 500 MG (1250 MG)?200 UNIT TABLET

REACTIONS (6)
  - Anaphylactic reaction [Unknown]
  - Aspartate aminotransferase increased [Unknown]
  - Vomiting [Unknown]
  - Upper respiratory tract infection [Unknown]
  - Pneumonia [Unknown]
  - Hepatic enzyme increased [Unknown]
